FAERS Safety Report 4668276-3 (Version None)
Quarter: 2005Q2

REPORT INFORMATION
  Report Type: 
  Country: None (occurrence: None)
  Receive Date: 20050523
  Receipt Date: 20050106
  Transmission Date: 20051028
  Serious: Yes (Other)
  Sender: FDA-Public Use
  Company Number: PHEH2005US00616

PATIENT
  Sex: Male

DRUGS (4)
  1. FORADIL [Concomitant]
  2. FLOVENT [Concomitant]
  3. AREDIA [Suspect]
     Indication: PROSTATE CANCER METASTATIC
     Dates: start: 20030701
  4. ZOMETA [Suspect]
     Indication: PROSTATE CANCER METASTATIC
     Dosage: UNK, UNK
     Route: 042
     Dates: start: 20030701

REACTIONS (5)
  - BONE DISORDER [None]
  - BONE LESION EXCISION [None]
  - MOUTH ULCERATION [None]
  - OSTEONECROSIS [None]
  - STOMATITIS [None]
